FAERS Safety Report 5449044-1 (Version None)
Quarter: 2007Q3

REPORT INFORMATION
  Report Type: 
  Country: None (occurrence: None)
  Receive Date: 20070911
  Receipt Date: 20070907
  Transmission Date: 20080115
  Serious: Yes (Hospitalization)
  Sender: FDA-Public Use
  Company Number: US-ASTRAZENECA-2007UW15682

PATIENT
  Age: 18 Year
  Sex: Male

DRUGS (3)
  1. SEROQUEL [Suspect]
     Indication: BIPOLAR DISORDER
     Route: 048
     Dates: start: 20070616
  2. SEROQUEL [Suspect]
     Indication: MANIA
     Route: 048
     Dates: start: 20070616
  3. ATIVAN [Concomitant]
     Indication: ANGER
     Route: 048
     Dates: start: 20070616

REACTIONS (3)
  - HOMICIDAL IDEATION [None]
  - OVERDOSE [None]
  - SUICIDAL IDEATION [None]
